FAERS Safety Report 22277955 (Version 3)
Quarter: 2023Q2

REPORT INFORMATION
  Report Type: Report from Study
  Country: US (occurrence: US)
  Receive Date: 20230503
  Receipt Date: 20230609
  Transmission Date: 20230722
  Serious: No
  Sender: FDA-Public Use
  Company Number: US-002147023-NVSC2023US099724

PATIENT
  Sex: Male

DRUGS (5)
  1. ENTRESTO [Suspect]
     Active Substance: SACUBITRIL\VALSARTAN
     Indication: Product used for unknown indication
     Dosage: 1 DOSAGE FORM, BID
     Route: 048
  2. CARVEDILOL [Suspect]
     Active Substance: CARVEDILOL
     Indication: Product used for unknown indication
     Dosage: UNK
     Route: 065
  3. METOPROLOL [Suspect]
     Active Substance: METOPROLOL
     Indication: Product used for unknown indication
     Dosage: UNK
     Route: 065
  4. METOPROLOL [Suspect]
     Active Substance: METOPROLOL
     Dosage: UNK (DOSE TWICE)
     Route: 065
  5. METOPROLOL [Suspect]
     Active Substance: METOPROLOL
     Dosage: UNK ( DOUBLED DOSE TWICE)
     Route: 065

REACTIONS (6)
  - Chest pain [Unknown]
  - Fatigue [Unknown]
  - Gastrooesophageal reflux disease [Unknown]
  - Palpitations [Unknown]
  - Feeling abnormal [Unknown]
  - Blood pressure decreased [Unknown]
